FAERS Safety Report 5524706-6 (Version None)
Quarter: 2007Q4

REPORT INFORMATION
  Report Type: 
  Country: None (occurrence: None)
  Receive Date: 20071123
  Receipt Date: 20071121
  Transmission Date: 20080405
  Serious: Yes (Other)
  Sender: FDA-Public Use
  Company Number: PHMT2007CA01862

PATIENT
  Age: 71 Year
  Sex: Female

DRUGS (2)
  1. DIOVAN / DIOVAN HCT [Suspect]
     Indication: HYPERTENSION
     Dosage: 160/12.5
     Route: 048
     Dates: start: 20070807, end: 20070901
  2. SYNTHROID [Concomitant]
     Dosage: 0.125MG

REACTIONS (5)
  - ATRIAL FIBRILLATION [None]
  - CARDIOVERSION [None]
  - CHEST DISCOMFORT [None]
  - HEART RATE INCREASED [None]
  - PALPITATIONS [None]
